FAERS Safety Report 5518982-3 (Version None)
Quarter: 2007Q4

REPORT INFORMATION
  Report Type: 
  Country: None (occurrence: None)
  Receive Date: 20071116
  Receipt Date: 20071112
  Transmission Date: 20080405
  Serious: Yes (Life-Threatening)
  Sender: FDA-Public Use
  Company Number: PHEH2007US14685

PATIENT
  Sex: Female

DRUGS (1)
  1. FORADIL [Suspect]

REACTIONS (2)
  - DEVICE MALFUNCTION [None]
  - PNEUMONIA [None]
